FAERS Safety Report 18260435 (Version 1)
Quarter: 2020Q3

REPORT INFORMATION
  Report Type: Spontaneous
  Country: GB (occurrence: GB)
  Receive Date: 20200914
  Receipt Date: 20200914
  Transmission Date: 20201103
  Serious: Yes (Other)
  Sender: FDA-Public Use
  Company Number: GB-TEVA-2020-GB-1825799

PATIENT
  Age: 53 Year
  Sex: Male
  Weight: 79.37 kg

DRUGS (2)
  1. SAINSBURYS A?Z MULTIVITAMINS AND MINERALS [Concomitant]
     Indication: ILL-DEFINED DISORDER
  2. ATORVASTATIN CALCIUM TRIHYDRATE [Suspect]
     Active Substance: ATORVASTATIN CALCIUM
     Dosage: 20MG
     Route: 048
     Dates: start: 20170808

REACTIONS (2)
  - Flatulence [Not Recovered/Not Resolved]
  - Erectile dysfunction [Not Recovered/Not Resolved]

NARRATIVE: CASE EVENT DATE: 20180101
